FAERS Safety Report 15662091 (Version 3)
Quarter: 2018Q4

REPORT INFORMATION
  Report Type: Spontaneous
  Country: JP (occurrence: JP)
  Receive Date: 20181127
  Receipt Date: 20181231
  Transmission Date: 20190205
  Serious: Yes (Death, Hospitalization)
  Sender: FDA-Public Use
  Company Number: PHJP2018JP019974

PATIENT
  Age: 85 Year
  Sex: Male
  Weight: 68.5 kg

DRUGS (1)
  1. VOTRIENT [Suspect]
     Active Substance: PAZOPANIB HYDROCHLORIDE
     Indication: RENAL CELL CARCINOMA
     Dosage: 400 MG, QD
     Route: 048
     Dates: start: 20180710, end: 20180828

REACTIONS (6)
  - Multiple organ dysfunction syndrome [Fatal]
  - Fatigue [Fatal]
  - Renal failure [Fatal]
  - Jaundice [Fatal]
  - Hepatic function abnormal [Fatal]
  - Decreased appetite [Fatal]

NARRATIVE: CASE EVENT DATE: 20180828
